FAERS Safety Report 20910948 (Version 1)
Quarter: 2022Q2

REPORT INFORMATION
  Report Type: Report from Study
  Country: ZA (occurrence: ZA)
  Receive Date: 20220603
  Receipt Date: 20220603
  Transmission Date: 20220720
  Serious: Yes (Hospitalization)
  Sender: FDA-Public Use
  Company Number: ZA-MYLANLABS-2022M1041802

PATIENT
  Sex: Female

DRUGS (2)
  1. TENOFOVIR DISOPROXIL [Suspect]
     Active Substance: TENOFOVIR DISOPROXIL
     Indication: Prophylaxis against HIV infection
     Dosage: 300 MILLIGRAM, QD, PLUS ORAL CABOTEGRAVIR PLACEBO FOR 5 WEEKS. THEREAFTER, SHE....
     Route: 048
  2. EMTRICITABINE [Suspect]
     Active Substance: EMTRICITABINE
     Indication: Prophylaxis against HIV infection
     Dosage: 200 MILLIGRAM, QD   PLUS ORAL CABOTEGRAVIR PLACEBO FOR 5 WEEKS. THEREAFTER, SHE...
     Route: 048

REACTIONS (1)
  - Seizure [Unknown]
